FAERS Safety Report 18478886 (Version 1)
Quarter: 2020Q4

REPORT INFORMATION
  Report Type: Spontaneous
  Country: US (occurrence: US)
  Receive Date: 20201109
  Receipt Date: 20201109
  Transmission Date: 20210114
  Serious: Yes (Other)
  Sender: FDA-Public Use
  Company Number: US-SPECGX-T202002178

PATIENT
  Age: 16 Year
  Sex: Male

DRUGS (14)
  1. FENTANYL. [Suspect]
     Active Substance: FENTANYL
     Indication: HEADACHE
     Dosage: UNK (600 UG/H)
     Route: 065
  2. MORPHINE [Suspect]
     Active Substance: MORPHINE
     Dosage: UNK, 30 MG/H
     Route: 065
  3. PAMELOR [Suspect]
     Active Substance: NORTRIPTYLINE HYDROCHLORIDE
     Indication: GRAFT VERSUS HOST DISEASE
  4. KETAMINE [Suspect]
     Active Substance: KETAMINE
     Indication: HEADACHE
     Dosage: 20 MILLIGRAM, EVERY 3 HOURS AS NEEDED
     Route: 042
  5. FENTANYL. [Suspect]
     Active Substance: FENTANYL
     Indication: GRAFT VERSUS HOST DISEASE
     Dosage: 300 UG EVERY 15 MINUTES AS NEEDED (TOTAL OF 12,600 MG DAILY)
     Route: 065
  6. MORPHINE [Suspect]
     Active Substance: MORPHINE
     Indication: PAIN
     Dosage: UNK, 15 MG/H AND 7 MG EVERY 10 MINUTES AS NEEDED
     Route: 065
  7. GABAPENTIN. [Suspect]
     Active Substance: GABAPENTIN
     Indication: GRAFT VERSUS HOST DISEASE
     Dosage: 900 MILLIGRAM, TID
     Route: 065
  8. METHADONE [Suspect]
     Active Substance: METHADONE HYDROCHLORIDE
     Indication: HEADACHE
     Dosage: 40 MILLIGRAM, Q6H
     Route: 048
  9. METHADONE [Suspect]
     Active Substance: METHADONE HYDROCHLORIDE
     Indication: GRAFT VERSUS HOST DISEASE
  10. GABAPENTIN. [Suspect]
     Active Substance: GABAPENTIN
     Indication: HEADACHE
  11. PAMELOR [Suspect]
     Active Substance: NORTRIPTYLINE HYDROCHLORIDE
     Indication: HEADACHE
     Dosage: 100 MILLIGRAM, QD
     Route: 065
  12. KETAMINE [Suspect]
     Active Substance: KETAMINE
     Indication: GRAFT VERSUS HOST DISEASE
     Dosage: UNK, 10 MG/H
     Route: 065
  13. MORPHINE [Suspect]
     Active Substance: MORPHINE
     Dosage: UNK, 20 MG/H AND 10 MG EVERY10 MINUTES
     Route: 065
  14. MORPHINE [Suspect]
     Active Substance: MORPHINE
     Dosage: 7.5 MILLIGRAM, PRN
     Route: 048

REACTIONS (2)
  - Hyperaesthesia [Unknown]
  - Drug ineffective for unapproved indication [Unknown]
